FAERS Safety Report 12339249 (Version 1)
Quarter: 2016Q2

REPORT INFORMATION
  Report Type: Spontaneous
  Country: US (occurrence: US)
  Receive Date: 20160505
  Receipt Date: 20160505
  Transmission Date: 20160815
  Serious: Yes (Other)
  Sender: FDA-Public Use
  Company Number: US-ASTRAZENECA-2016SE46797

PATIENT
  Age: 71 Year
  Sex: Female

DRUGS (20)
  1. VITAMIN D3 [Concomitant]
     Active Substance: CHOLECALCIFEROL
     Route: 048
  2. TOPIRAMATE. [Concomitant]
     Active Substance: TOPIRAMATE
     Route: 048
  3. ABRAXANE [Concomitant]
     Active Substance: PACLITAXEL
     Dates: start: 200705
  4. XELODA [Concomitant]
     Active Substance: CAPECITABINE
     Dates: end: 200906
  5. DOCUSATE [Concomitant]
     Active Substance: DOCUSATE
     Route: 048
  6. ARIMIDEX [Suspect]
     Active Substance: ANASTROZOLE
     Indication: PROPHYLAXIS
     Route: 048
     Dates: start: 200310, end: 2004
  7. FASLODEX [Suspect]
     Active Substance: FULVESTRANT
     Route: 030
  8. IBRANCE [Suspect]
     Active Substance: PALBOCICLIB
     Indication: BREAST CANCER
     Route: 048
     Dates: start: 201511
  9. FEMARA [Concomitant]
     Active Substance: LETROZOLE
     Route: 048
  10. MAG-OX [Concomitant]
     Active Substance: MAGNESIUM OXIDE
     Route: 048
  11. IMIPRAMINE [Concomitant]
     Active Substance: IMIPRAMINE
     Route: 048
  12. SENNA [Concomitant]
     Active Substance: SENNA LEAF\SENNOSIDES\SENNOSIDES A AND B
     Route: 048
  13. ZOMETA [Concomitant]
     Active Substance: ZOLEDRONIC ACID
     Dates: start: 2009
  14. PRILOSEC OTC [Suspect]
     Active Substance: OMEPRAZOLE MAGNESIUM
     Route: 048
  15. METOPROLOL TARTRATE. [Concomitant]
     Active Substance: METOPROLOL TARTRATE
     Route: 048
  16. CALCIUM [Concomitant]
     Active Substance: CALCIUM
     Route: 048
  17. AROMASIN [Concomitant]
     Active Substance: EXEMESTANE
     Dates: start: 200406
  18. BUSPIRONE [Concomitant]
     Active Substance: BUSPIRONE HYDROCHLORIDE
     Route: 048
  19. MOBIC [Concomitant]
     Active Substance: MELOXICAM
     Route: 048
  20. GABAPENTIN. [Concomitant]
     Active Substance: GABAPENTIN
     Route: 048

REACTIONS (9)
  - Fatigue [Unknown]
  - Anxiety [Unknown]
  - Joint stiffness [Unknown]
  - Breast cancer metastatic [None]
  - Hypersomnia [Unknown]
  - Dyspnoea [Unknown]
  - Hypoaesthesia [Unknown]
  - Asthenia [Unknown]
  - Malignant neoplasm progression [Unknown]
